FAERS Safety Report 4588741-7 (Version None)
Quarter: 2005Q1

REPORT INFORMATION
  Report Type: 
  Country: None (occurrence: None)
  Receive Date: 20050222
  Receipt Date: 20050210
  Transmission Date: 20050727
  Serious: Yes (Hospitalization)
  Sender: FDA-Public Use
  Company Number: NL-BRISTOL-MYERS SQUIBB COMPANY-12856845

PATIENT
  Age: 30 Year
  Sex: Female

DRUGS (3)
  1. ABILIFY [Suspect]
     Indication: SCHIZOPHRENIA, PARANOID TYPE
     Dosage: 15 MG 29-OCT-04 TO 03-DEC-04; 30 MG 03-DEC-04 TO 09-DEC-04
     Dates: start: 20041029, end: 20041209
  2. OLANZAPINE [Suspect]
     Dosage: 'TILL 15-NOV-04 5 MG; THEN 15-NOV-04 TO 22-NOV-04, 2.5 MG: THEN 30 TABLETS OF 5 MG ON 19-DEC-04 (OD)
     Dates: end: 20041122
  3. OXAZEPAM [Suspect]

REACTIONS (6)
  - ANXIETY [None]
  - COMPARTMENT SYNDROME [None]
  - INSOMNIA [None]
  - NEGATIVE THOUGHTS [None]
  - RESTLESSNESS [None]
  - SUICIDE ATTEMPT [None]
